FAERS Safety Report 19268960 (Version 1)
Quarter: 2021Q2

REPORT INFORMATION
  Report Type: Spontaneous
  Country: DE (occurrence: DE)
  Receive Date: 20210518
  Receipt Date: 20210518
  Transmission Date: 20210717
  Serious: Yes (Hospitalization)
  Sender: FDA-Public Use
  Company Number: DE-SUN PHARMACEUTICAL INDUSTRIES LTD-2021RR-288344

PATIENT
  Age: 20 Year
  Sex: Female
  Weight: 43 kg

DRUGS (9)
  1. SERTRALIN?1 A PHARMA 50 MG FILMTABLETTEN [Suspect]
     Active Substance: SERTRALINE HYDROCHLORIDE
     Dosage: 100 MILLIGRAM, DAILY
     Route: 048
     Dates: start: 20210301, end: 20210310
  2. OPIPRAM 50 MG FILMTABLETTEN [Concomitant]
     Indication: RESTLESSNESS
     Dosage: 50 MILLIGRAM, BID, IF NECESSARY, 50MG IN ADDITION
     Route: 048
     Dates: start: 20201125
  3. SWINGO 30 [Concomitant]
     Indication: CONTRACEPTION
     Dosage: USE FOR 3 YEARS ()
     Route: 065
  4. TAVOR 0,5 MG [Concomitant]
     Indication: TENSION
     Dosage: 1 TO 2 TABLETS / DAY (MAXIMUM 3X / WEEK) (); AS NECESSARY
     Route: 065
  5. SERTRALINE [Suspect]
     Active Substance: SERTRALINE HYDROCHLORIDE
     Indication: APATHY
     Dosage: 50 MILLIGRAM, DAILY
     Route: 048
     Dates: start: 20210311
  6. SERTRALINE [Suspect]
     Active Substance: SERTRALINE HYDROCHLORIDE
     Dosage: 100 MILLIGRAM, DAILY
     Route: 048
     Dates: start: 20210301, end: 20210310
  7. SERTRALIN?1 A PHARMA 50 MG FILMTABLETTEN [Suspect]
     Active Substance: SERTRALINE HYDROCHLORIDE
     Indication: ANXIETY
     Dosage: 50 MILLIGRAM, DAILY
     Route: 048
     Dates: start: 20210311
  8. SERTRALIN?1 A PHARMA 50 MG FILMTABLETTEN [Suspect]
     Active Substance: SERTRALINE HYDROCHLORIDE
     Dosage: 150 MILLIGRAM, DAILY, INITIALLY REDUCED, THEN COMPLETELY DISCONTINUED
     Route: 048
     Dates: start: 20210224, end: 20210314
  9. SERTRALINE [Suspect]
     Active Substance: SERTRALINE HYDROCHLORIDE
     Dosage: 150 MILLIGRAM, DAILY
     Route: 048
     Dates: start: 20210224, end: 20210228

REACTIONS (5)
  - Nausea [Recovered/Resolved]
  - Diarrhoea [Recovered/Resolved]
  - Dizziness [Recovered/Resolved]
  - Dehydration [Recovered/Resolved]
  - Muscle twitching [Recovered/Resolved]

NARRATIVE: CASE EVENT DATE: 20210224
